FAERS Safety Report 9136991 (Version 1)
Quarter: 2013Q1

REPORT INFORMATION
  Report Type: Spontaneous
  Country: US (occurrence: US)
  Receive Date: 20130304
  Receipt Date: 20130304
  Transmission Date: 20140127
  Serious: No
  Sender: FDA-Public Use
  Company Number: US-ASTRAZENECA-2013SE05962

PATIENT
  Age: 73 Year
  Sex: Male
  Weight: 105.2 kg

DRUGS (2)
  1. ZOMIG [Suspect]
     Indication: MIGRAINE
     Route: 048
     Dates: start: 20130118, end: 20130123
  2. FOSNOPRIL [Concomitant]
     Indication: HYPERTENSION

REACTIONS (2)
  - Migraine [Unknown]
  - Drug dose omission [Unknown]
